FAERS Safety Report 10571841 (Version 5)
Quarter: 2015Q1

REPORT INFORMATION
  Report Type: Report from Study
  Country: GB (occurrence: GB)
  Receive Date: 20141107
  Receipt Date: 20150130
  Transmission Date: 20150720
  Serious: Yes (Disabling, Other)
  Sender: FDA-Public Use
  Company Number: GB-ABBVIE-14K-167-1304277-00

PATIENT
  Age: 51 Year
  Sex: Male
  Weight: 87 kg

DRUGS (2)
  1. HYDROXYCHLOROQUINE [Concomitant]
     Active Substance: HYDROXYCHLOROQUINE
     Indication: RHEUMATOID ARTHRITIS
     Route: 048
     Dates: start: 20140417
  2. HUMIRA [Suspect]
     Active Substance: ADALIMUMAB
     Indication: RHEUMATOID ARTHRITIS
     Route: 058
     Dates: start: 20140306, end: 201411

REACTIONS (13)
  - Lumbar spinal stenosis [Unknown]
  - Nerve root compression [Unknown]
  - Drug effect decreased [Unknown]
  - Cauda equina syndrome [Unknown]
  - Musculoskeletal stiffness [Unknown]
  - Peripheral swelling [Unknown]
  - Paraesthesia [Unknown]
  - Alanine aminotransferase increased [Unknown]
  - Intervertebral disc displacement [Not Recovered/Not Resolved]
  - Gait disturbance [Unknown]
  - Sciatica [Unknown]
  - Cough [Unknown]
  - Intervertebral disc protrusion [Unknown]

NARRATIVE: CASE EVENT DATE: 2014
